FAERS Safety Report 10516078 (Version 1)
Quarter: 2014Q4

REPORT INFORMATION
  Report Type: Spontaneous
  Country: ES (occurrence: None)
  Receive Date: 20141009
  Receipt Date: 20141009
  Transmission Date: 20150528
  Serious: Yes (Death)
  Sender: FDA-Public Use
  Company Number: IMP_07946_2014

PATIENT
  Age: 37 Year
  Sex: Female

DRUGS (3)
  1. LEVOTHYROXINE [Concomitant]
     Active Substance: LEVOTHYROXINE
  2. BACLOFEN. [Suspect]
     Active Substance: BACLOFEN
     Indication: MUSCLE SPASTICITY
     Dosage: ([IMPLANTED INFUSION PUMP, DOSE AND FREQUENCY UNKNOWN] INTRATHECAL)
  3. INTERFERON BETA NOS [Concomitant]
     Active Substance: INTERFERON BETA

REACTIONS (16)
  - Pyrexia [None]
  - Muscle spasticity [None]
  - Red blood cell sedimentation rate decreased [None]
  - Blood creatine phosphokinase increased [None]
  - Blood albumin decreased [None]
  - Infected skin ulcer [None]
  - Confusional state [None]
  - Somnolence [None]
  - Depressed level of consciousness [None]
  - General physical health deterioration [None]
  - Blood urea increased [None]
  - Tachypnoea [None]
  - C-reactive protein decreased [None]
  - Condition aggravated [None]
  - Tachycardia [None]
  - Device related infection [None]
